FAERS Safety Report 19740489 (Version 1)
Quarter: 2021Q3

REPORT INFORMATION
  Report Type: Spontaneous
  Country: DE (occurrence: DE)
  Receive Date: 20210824
  Receipt Date: 20210824
  Transmission Date: 20211014
  Serious: Yes (Hospitalization)
  Sender: FDA-Public Use
  Company Number: DE-ACCORD-235968

PATIENT
  Age: 54 Year
  Sex: Male

DRUGS (6)
  1. CREON [Concomitant]
     Active Substance: PANCRELIPASE AMYLASE\PANCRELIPASE LIPASE\PANCRELIPASE PROTEASE
     Dosage: 25,000 IU, TWO TO THREE WHILE EATING, CAPSULES
     Route: 048
  2. CAPECITABINE. [Suspect]
     Active Substance: CAPECITABINE
     Indication: PRODUCT USED FOR UNKNOWN INDICATION
     Dosage: 500 MG, FIVE TABLETS IN THE MORNING AND IN THE EVENING FOR FOURTEEN DAYS
     Route: 048
  3. SODIUM PICOSULFATE [Concomitant]
     Active Substance: SODIUM PICOSULFATE
     Dosage: LAXATIVE DROPS 7.5MG / ML?IF NECESSARY, DROPS
     Route: 048
  4. HYDROCHLOROTHIAZIDE. [Concomitant]
     Active Substance: HYDROCHLOROTHIAZIDE
     Dosage: 25 MG, 1?0?0?0, TABLETS
     Route: 048
  5. LERCANIDIPINE [Concomitant]
     Active Substance: LERCANIDIPINE
     Dosage: 0?0?1?0, TABLETS
     Route: 048
  6. RAMIPRIL. [Concomitant]
     Active Substance: RAMIPRIL
     Dosage: 2.5 MG, 1?0?1?0, TABLETS
     Route: 048

REACTIONS (2)
  - Dizziness [Unknown]
  - Haematochezia [Unknown]
